FAERS Safety Report 24121669 (Version 3)
Quarter: 2024Q3

REPORT INFORMATION
  Report Type: Spontaneous
  Country: AT (occurrence: AT)
  Receive Date: 20240722
  Receipt Date: 20240928
  Transmission Date: 20241016
  Serious: Yes (Other)
  Sender: Karo Pharma
  Company Number: AT-Karo Pharma-2159448

PATIENT
  Age: 56 Year
  Sex: Male

DRUGS (1)
  1. TERBINAFINE [Suspect]
     Active Substance: TERBINAFINE
     Indication: Product used for unknown indication

REACTIONS (2)
  - Thrombosis [Recovering/Resolving]
  - Peripheral swelling [Recovering/Resolving]

NARRATIVE: CASE EVENT DATE: 20240626
